FAERS Safety Report 19489385 (Version 1)
Quarter: 2021Q3

REPORT INFORMATION
  Report Type: Report from Study
  Country: KR (occurrence: KR)
  Receive Date: 20210703
  Receipt Date: 20210703
  Transmission Date: 20211014
  Serious: Yes (Hospitalization, Other)
  Sender: FDA-Public Use
  Company Number: KR-AMGEN-KORNI2021102007

PATIENT
  Age: 45 Year
  Sex: Female

DRUGS (15)
  1. PEGFILGRASTIM [Suspect]
     Active Substance: PEGFILGRASTIM
     Dosage: 6 MILLIGRAM
     Route: 058
     Dates: start: 20210127
  2. DOCETAXEL. [Concomitant]
     Active Substance: DOCETAXEL
     Dosage: 179 MILLIGRAM
     Dates: start: 20210105, end: 20210105
  3. DOCETAXEL. [Concomitant]
     Active Substance: DOCETAXEL
     Dosage: 181 MILLIGRAM
     Dates: start: 20210126, end: 20210126
  4. DOXORUBICIN [Concomitant]
     Active Substance: DOXORUBICIN
     Indication: BREAST CANCER
     Dosage: 105.6 MILLIGRAM
     Dates: start: 20200901, end: 20200901
  5. CYCLOPHOSPHAMIDE. [Concomitant]
     Active Substance: CYCLOPHOSPHAMIDE
     Dosage: 1050 MILLIGRAM
     Dates: start: 20200922, end: 20200922
  6. DOCETAXEL. [Concomitant]
     Active Substance: DOCETAXEL
     Indication: BREAST CANCER
     Dosage: 177 MILLIGRAM
     Dates: start: 20201124, end: 20201124
  7. CYCLOPHOSPHAMIDE. [Concomitant]
     Active Substance: CYCLOPHOSPHAMIDE
     Dosage: 1068 MILLIGRAM
     Dates: start: 20201103, end: 20201103
  8. PEGFILGRASTIM [Suspect]
     Active Substance: PEGFILGRASTIM
     Indication: BREAST CANCER
     Dosage: 6 MILLIGRAM
     Route: 058
     Dates: start: 20201216, end: 20201216
  9. CYCLOPHOSPHAMIDE. [Concomitant]
     Active Substance: CYCLOPHOSPHAMIDE
     Indication: BREAST CANCER
     Dosage: 1056 MILLIGRAM
     Dates: start: 20200901, end: 20200901
  10. CYCLOPHOSPHAMIDE. [Concomitant]
     Active Substance: CYCLOPHOSPHAMIDE
     Dosage: 1056 MILLIGRAM
     Dates: start: 20201013, end: 20201013
  11. DOXORUBICIN [Concomitant]
     Active Substance: DOXORUBICIN
     Dosage: 105.6 MILLIGRAM
     Dates: start: 20201013, end: 20201013
  12. DOXORUBICIN [Concomitant]
     Active Substance: DOXORUBICIN
     Dosage: 105 MILLIGRAM
     Dates: start: 20200922, end: 20200922
  13. DOXORUBICIN [Concomitant]
     Active Substance: DOXORUBICIN
     Dosage: 106.8 MILLIGRAM
     Dates: start: 20201103, end: 20201103
  14. PEGFILGRASTIM [Suspect]
     Active Substance: PEGFILGRASTIM
     Dosage: 6 MILLIGRAM
     Route: 058
     Dates: start: 20210106, end: 20210106
  15. DOCETAXEL. [Concomitant]
     Active Substance: DOCETAXEL
     Dosage: 178 MILLIGRAM
     Dates: start: 20201215, end: 20201215

REACTIONS (1)
  - Syncope [Recovered/Resolved]

NARRATIVE: CASE EVENT DATE: 20210129
